FAERS Safety Report 7045881-0 (Version None)
Quarter: 2010Q4

REPORT INFORMATION
  Report Type: 
  Country: None (occurrence: None)
  Receive Date: 20101014
  Receipt Date: 20101001
  Transmission Date: 20110411
  Serious: Yes (Other)
  Sender: FDA-Public Use
  Company Number: PHHY2010US66105

PATIENT
  Sex: Female

DRUGS (2)
  1. ZOMETA [Suspect]
  2. BONIVA [Suspect]

REACTIONS (2)
  - OESOPHAGEAL ACHALASIA [None]
  - PAIN [None]
